FAERS Safety Report 19217250 (Version 1)
Quarter: 2021Q2

REPORT INFORMATION
  Report Type: Spontaneous
  Country: US (occurrence: US)
  Receive Date: 20210505
  Receipt Date: 20210505
  Transmission Date: 20210717
  Serious: Yes (Other)
  Sender: FDA-Public Use
  Company Number: US-SUN PHARMACEUTICAL INDUSTRIES LTD-2021R1-294703

PATIENT
  Age: 23 Year
  Sex: Female

DRUGS (3)
  1. IFOSFAMIDE. [Suspect]
     Active Substance: IFOSFAMIDE
     Indication: CHEMOTHERAPY
     Dosage: UNK
     Route: 065
  2. CARBOPLATIN. [Suspect]
     Active Substance: CARBOPLATIN
     Indication: CHEMOTHERAPY
     Dosage: 700 MILLIGRAM/SQ. METER, DAILY/ 3 DOSES
     Route: 065
  3. ETOPOSIDE. [Suspect]
     Active Substance: ETOPOSIDE
     Indication: CHEMOTHERAPY
     Dosage: 750 MILLIGRAM/SQ. METER, DAILY/ 3 DOSES
     Route: 065

REACTIONS (7)
  - Mucosal inflammation [Unknown]
  - Transaminases increased [Unknown]
  - Alopecia [Unknown]
  - Dysuria [Unknown]
  - Febrile neutropenia [Unknown]
  - Appendicitis [Unknown]
  - Fatigue [Unknown]
